FAERS Safety Report 13088973 (Version 2)
Quarter: 2017Q1

REPORT INFORMATION
  Report Type: Spontaneous
  Country: FR (occurrence: FR)
  Receive Date: 20170105
  Receipt Date: 20170206
  Transmission Date: 20170428
  Serious: Yes (Hospitalization)
  Sender: FDA-Public Use
  Company Number: FR-PFIZER INC-2016605136

PATIENT
  Age: 51 Year
  Sex: Female

DRUGS (3)
  1. KETAMINE [Suspect]
     Active Substance: KETAMINE
     Indication: FIBROMYALGIA
     Dosage: 50 DF, UNK
     Route: 048
  2. KETAMINE [Suspect]
     Active Substance: KETAMINE
     Indication: PAIN
  3. LAROXYL [Concomitant]
     Active Substance: AMITRIPTYLINE
     Dosage: UNK

REACTIONS (4)
  - Coma [Recovered/Resolved]
  - Overdose [Unknown]
  - Pneumonia aspiration [Recovered/Resolved]
  - Pneumonia [Recovered/Resolved]

NARRATIVE: CASE EVENT DATE: 2016
